FAERS Safety Report 4728685-0 (Version None)
Quarter: 2005Q3

REPORT INFORMATION
  Report Type: 
  Country: None (occurrence: None)
  Receive Date: 20050727
  Receipt Date: 20050712
  Transmission Date: 20060218
  Serious: Yes (Other)
  Sender: FDA-Public Use
  Company Number: CHPA2005US01533

PATIENT
  Age: 46 Year
  Sex: Female
  Weight: 70.3 kg

DRUGS (2)
  1. CONTROL STEP 1 21MG (NCH)(NICOTINE) TRANS-THERAPEUTIC-SYSTEM [Suspect]
     Indication: SMOKING CESSATION THERAPY
     Dosage: 21 MG, QD, TRANSDERMAL
     Route: 062
     Dates: start: 20050520
  2. NEXIUM [Concomitant]

REACTIONS (11)
  - ANXIETY [None]
  - ASTHENIA [None]
  - CHEST PAIN [None]
  - CONDITION AGGRAVATED [None]
  - HEADACHE [None]
  - HYPERTENSION [None]
  - HYPOACUSIS [None]
  - MIGRAINE WITHOUT AURA [None]
  - MUSCLE SPASMS [None]
  - PANIC ATTACK [None]
  - TEMPORAL ARTERITIS [None]
